FAERS Safety Report 8767609 (Version 1)
Quarter: 2012Q4

REPORT INFORMATION
  Report Type: 
  Country: US (occurrence: US)
  Receive Date: 20120904
  Receipt Date: 20120904
  Transmission Date: 20130627
  Serious: No
  Sender: FDA-Public Use
  Company Number: US-PFIZER INC-2012215257

PATIENT
  Age: 47 Year
  Sex: Male
  Weight: 81.63 kg

DRUGS (3)
  1. NEURONTIN [Suspect]
     Indication: NEUROPATHY PERIPHERAL
     Dosage: 3300 mg,daily
     Dates: start: 201202
  2. CELEXA [Concomitant]
     Indication: DEPRESSION
     Dosage: 20 mg,daily
  3. AMBIEN [Concomitant]
     Indication: SLEEP DISORDER
     Dosage: 10 mg, daily at night

REACTIONS (1)
  - Drug ineffective [Unknown]
